FAERS Safety Report 8357604-3 (Version None)
Quarter: 2012Q2

REPORT INFORMATION
  Report Type: 
  Country: None (occurrence: None)
  Receive Date: 20120514
  Receipt Date: 20120430
  Transmission Date: 20120825
  Serious: Yes (Hospitalization)
  Sender: FDA-Public Use
  Company Number: NL-MYLANLABS-2012S1009186

PATIENT
  Age: 29 Year
  Sex: Female

DRUGS (1)
  1. AZATHIOPRINE [Suspect]
     Indication: WEGENER'S GRANULOMATOSIS
     Route: 065

REACTIONS (4)
  - FOETAL DISTRESS SYNDROME [None]
  - NORMAL NEWBORN [None]
  - MATERNAL EXPOSURE DURING PREGNANCY [None]
  - INTRAUTERINE INFECTION [None]
